FAERS Safety Report 14517361 (Version 2)
Quarter: 2018Q1

REPORT INFORMATION
  Report Type: Spontaneous
  Country: US (occurrence: US)
  Receive Date: 20180212
  Receipt Date: 20180319
  Transmission Date: 20180509
  Serious: No
  Sender: FDA-Public Use
  Company Number: PHEH2018US004621

PATIENT
  Sex: Male
  Weight: 135 kg

DRUGS (1)
  1. ERYTHROMYCIN. [Suspect]
     Active Substance: ERYTHROMYCIN
     Indication: DERMATITIS
     Dosage: UNK, PRN
     Route: 065

REACTIONS (2)
  - Product storage error [Unknown]
  - Drug ineffective [Not Recovered/Not Resolved]
